FAERS Safety Report 25376523 (Version 1)
Quarter: 2025Q2

REPORT INFORMATION
  Report Type: Report from Study
  Country: GB (occurrence: GB)
  Receive Date: 20250530
  Receipt Date: 20250530
  Transmission Date: 20250717
  Serious: Yes (Hospitalization, Other)
  Sender: ABBVIE
  Company Number: GB-ABBVIE-6296700

PATIENT
  Age: 60 Year
  Sex: Male
  Weight: 169 kg

DRUGS (46)
  1. SKYRIZI [Suspect]
     Active Substance: RISANKIZUMAB-RZAA
     Indication: Psoriasis
     Route: 058
     Dates: start: 20240209
  2. SKYRIZI [Suspect]
     Active Substance: RISANKIZUMAB-RZAA
     Route: 058
     Dates: start: 20210422, end: 20230721
  3. BUMETANIDE [Concomitant]
     Active Substance: BUMETANIDE
     Indication: Product used for unknown indication
     Dates: start: 20170519
  4. ASPIRIN [Concomitant]
     Active Substance: ASPIRIN
     Indication: Product used for unknown indication
     Dates: start: 20170811
  5. ATORVASTATIN [Concomitant]
     Active Substance: ATORVASTATIN
     Indication: Product used for unknown indication
     Dates: start: 20170811
  6. ISOSORBIDE MONONITRATE [Concomitant]
     Active Substance: ISOSORBIDE MONONITRATE
     Indication: Product used for unknown indication
     Dates: start: 20170811
  7. DAPAGLIFLOZIN [Concomitant]
     Active Substance: DAPAGLIFLOZIN
     Indication: Product used for unknown indication
     Dates: start: 20191213
  8. NITROGLYCERIN [Concomitant]
     Active Substance: NITROGLYCERIN
     Indication: Product used for unknown indication
     Dates: start: 20200302
  9. PREDNISOLONE [Concomitant]
     Active Substance: PREDNISOLONE
     Indication: Product used for unknown indication
     Dates: start: 20210803
  10. IBUPROFEN [Concomitant]
     Active Substance: IBUPROFEN
     Indication: Product used for unknown indication
     Dates: start: 20211110
  11. ACETAMINOPHEN [Concomitant]
     Active Substance: ACETAMINOPHEN
     Indication: Product used for unknown indication
     Dates: start: 20211206
  12. BUPRENORPHINE [Concomitant]
     Active Substance: BUPRENORPHINE
     Indication: Product used for unknown indication
     Dates: start: 20211206
  13. TRIMETHOPRIM [Concomitant]
     Active Substance: TRIMETHOPRIM
     Indication: Product used for unknown indication
     Dates: start: 20220126
  14. BUDESONIDE\FORMOTEROL [Concomitant]
     Active Substance: BUDESONIDE\FORMOTEROL
     Indication: Product used for unknown indication
     Dates: start: 20220901
  15. ACETYLCYSTEINE [Concomitant]
     Active Substance: ACETYLCYSTEINE
     Indication: Product used for unknown indication
     Dates: start: 20230707
  16. AMITRIPTYLINE [Concomitant]
     Active Substance: AMITRIPTYLINE
     Indication: Product used for unknown indication
     Dates: start: 20230814
  17. MIRTAZAPINE [Concomitant]
     Active Substance: MIRTAZAPINE
     Indication: Product used for unknown indication
     Dates: start: 20230828
  18. METOLAZONE [Concomitant]
     Active Substance: METOLAZONE
     Indication: Product used for unknown indication
     Dates: start: 20231023
  19. FUROSEMIDE [Concomitant]
     Active Substance: FUROSEMIDE
     Indication: Product used for unknown indication
     Dates: start: 20240107, end: 20240107
  20. FUROSEMIDE [Concomitant]
     Active Substance: FUROSEMIDE
     Indication: Product used for unknown indication
     Dates: start: 20240121, end: 20240124
  21. POTASSIUM CHLORIDE [Concomitant]
     Active Substance: POTASSIUM CHLORIDE
     Indication: Product used for unknown indication
     Dates: start: 20240108, end: 20240111
  22. POTASSIUM CHLORIDE [Concomitant]
     Active Substance: POTASSIUM CHLORIDE
     Indication: Product used for unknown indication
     Dates: start: 20240123, end: 20240126
  23. AMOXICILLIN [Concomitant]
     Active Substance: AMOXICILLIN
     Indication: Product used for unknown indication
     Dates: start: 20240123, end: 20240123
  24. AMOXICILLIN [Concomitant]
     Active Substance: AMOXICILLIN
     Indication: Product used for unknown indication
     Dates: start: 20240125, end: 20240130
  25. AMOXICILLIN [Concomitant]
     Active Substance: AMOXICILLIN
     Indication: Product used for unknown indication
     Dates: start: 20240716, end: 20240717
  26. AMOXICILLIN [Concomitant]
     Active Substance: AMOXICILLIN
     Indication: Product used for unknown indication
     Dates: start: 20240716, end: 20240716
  27. AMOXICILLIN [Concomitant]
     Active Substance: AMOXICILLIN
     Indication: Product used for unknown indication
     Dates: start: 20240717, end: 20240721
  28. AMOXICILLIN [Concomitant]
     Active Substance: AMOXICILLIN
     Indication: Product used for unknown indication
     Dates: start: 20250227, end: 20250303
  29. AMOXICILLIN [Concomitant]
     Active Substance: AMOXICILLIN
     Indication: Product used for unknown indication
     Dates: start: 20250303, end: 20250306
  30. COCODAMOL [Concomitant]
     Active Substance: ACETAMINOPHEN\CODEINE PHOSPHATE
     Indication: Product used for unknown indication
     Dates: start: 20080815
  31. METFORMIN [Concomitant]
     Active Substance: METFORMIN HYDROCHLORIDE
     Indication: Product used for unknown indication
     Dates: start: 20150916
  32. SERTRALINE [Concomitant]
     Active Substance: SERTRALINE HYDROCHLORIDE
     Indication: Product used for unknown indication
     Dates: start: 20160412
  33. Gabapentin A [Concomitant]
     Indication: Product used for unknown indication
     Dates: start: 20170407
  34. EPLERENONE [Concomitant]
     Active Substance: EPLERENONE
     Indication: Product used for unknown indication
     Dates: start: 20231023
  35. SILDENAFIL CITRATE [Concomitant]
     Active Substance: SILDENAFIL CITRATE
     Indication: Product used for unknown indication
     Dates: start: 20231023
  36. ALBUTEROL [Concomitant]
     Active Substance: ALBUTEROL
     Indication: Product used for unknown indication
     Dates: start: 20200303
  37. FLUCONAZOLE [Concomitant]
     Active Substance: FLUCONAZOLE
     Indication: Product used for unknown indication
     Dates: start: 20200918
  38. SYMBICORT [Concomitant]
     Active Substance: BUDESONIDE\FORMOTEROL FUMARATE DIHYDRATE
     Indication: Product used for unknown indication
     Dates: start: 20201104
  39. FOLIC ACID [Concomitant]
     Active Substance: FOLIC ACID
     Indication: Product used for unknown indication
     Dates: start: 20210429
  40. ALLOPURINOL [Concomitant]
     Active Substance: ALLOPURINOL
     Indication: Product used for unknown indication
     Dates: start: 20210510
  41. TRAZODONE [Concomitant]
     Active Substance: TRAZODONE HYDROCHLORIDE
     Indication: Product used for unknown indication
     Dates: start: 20210803
  42. RAMIPRIL [Concomitant]
     Active Substance: RAMIPRIL
     Indication: Product used for unknown indication
     Dates: start: 20210901
  43. DEXAMETHASONE [Concomitant]
     Active Substance: DEXAMETHASONE
     Indication: Product used for unknown indication
     Dates: start: 20240428, end: 20240509
  44. CIPROFLOXACIN [Concomitant]
     Active Substance: CIPROFLOXACIN
     Indication: Product used for unknown indication
     Dates: start: 20240808, end: 20240808
  45. GLICLAZIDE [Concomitant]
     Active Substance: GLICLAZIDE
     Indication: Product used for unknown indication
     Dates: start: 20241026, end: 20241029
  46. SEMAGLUTIDE [Concomitant]
     Active Substance: SEMAGLUTIDE
     Indication: Product used for unknown indication
     Dates: start: 20231023

REACTIONS (7)
  - Dyspnoea [Recovered/Resolved]
  - Pleural effusion [Recovered/Resolved]
  - Hypervolaemia [Recovered/Resolved]
  - Pulmonary hypertension [Recovered/Resolved]
  - Right ventricular failure [Recovered/Resolved]
  - Oedema [Recovered/Resolved]
  - Chest pain [Recovered/Resolved]

NARRATIVE: CASE EVENT DATE: 20240415
